FAERS Safety Report 9373805 (Version 3)
Quarter: 2017Q3

REPORT INFORMATION
  Report Type: Spontaneous
  Country: US (occurrence: US)
  Receive Date: 20130628
  Receipt Date: 20170927
  Transmission Date: 20171128
  Serious: Yes (Hospitalization, Other)
  Sender: FDA-Public Use
  Company Number: US-ROCHE-1242002

PATIENT
  Age: 65 Year
  Sex: Female

DRUGS (5)
  1. ACTONEL [Suspect]
     Active Substance: RISEDRONATE SODIUM
     Indication: OSTEOPOROSIS
     Route: 048
     Dates: start: 2003
  2. FOSAMAX [Suspect]
     Active Substance: ALENDRONATE SODIUM
     Indication: OSTEOPOROSIS
     Route: 065
     Dates: start: 2003
  3. BONIVA [Suspect]
     Active Substance: IBANDRONATE SODIUM
     Route: 048
     Dates: start: 2007, end: 2012
  4. BONIVA [Suspect]
     Active Substance: IBANDRONATE SODIUM
     Indication: OSTEOPOROSIS
     Route: 048
     Dates: start: 2003
  5. BONIVA [Suspect]
     Active Substance: IBANDRONATE SODIUM
     Route: 048
     Dates: start: 20070507

REACTIONS (12)
  - Stress urinary incontinence [Recovered/Resolved]
  - Uterovaginal prolapse [Recovered/Resolved]
  - Anxiety [Unknown]
  - Tarsal tunnel syndrome [Unknown]
  - Neck pain [Unknown]
  - Paraesthesia [Unknown]
  - Onychomycosis [Unknown]
  - Emotional distress [Unknown]
  - Femur fracture [Unknown]
  - Trigger finger [Unknown]
  - Pain in extremity [Unknown]
  - Haemorrhoids [Unknown]

NARRATIVE: CASE EVENT DATE: 200806
